FAERS Safety Report 10367494 (Version 1)
Quarter: 2014Q3

REPORT INFORMATION
  Report Type: Spontaneous
  Country: US (occurrence: US)
  Receive Date: 20140807
  Receipt Date: 20140807
  Transmission Date: 20150326
  Serious: No
  Sender: FDA-Public Use
  Company Number: US-BAYER-2014-117335

PATIENT
  Sex: Female

DRUGS (1)
  1. ALEVE [Suspect]
     Active Substance: NAPROXEN SODIUM
     Indication: SWELLING
     Dosage: DF, UNK
     Route: 048

REACTIONS (5)
  - Ocular discomfort [Not Recovered/Not Resolved]
  - Vision blurred [Recovered/Resolved]
  - Intentional product misuse [None]
  - Incorrect drug administration duration [None]
  - Blood pressure increased [Recovered/Resolved]
